FAERS Safety Report 5254805-8 (Version None)
Quarter: 2007Q1

REPORT INFORMATION
  Report Type: 
  Country: None (occurrence: None)
  Receive Date: 20070305
  Receipt Date: 20070219
  Transmission Date: 20070707
  Serious: Yes (Other)
  Sender: FDA-Public Use
  Company Number: JP-ELI_LILLY_AND_COMPANY-JP200702003834

PATIENT
  Age: 38 Year
  Sex: Male

DRUGS (1)
  1. ZYPREXA [Suspect]
     Dosage: UNK, UNKNOWN
     Route: 048

REACTIONS (1)
  - MYOCARDIAL INFARCTION [None]
